FAERS Safety Report 7470675-1 (Version None)
Quarter: 2011Q2

REPORT INFORMATION
  Report Type: 
  Country: None (occurrence: None)
  Receive Date: 20110429
  Receipt Date: 20110420
  Transmission Date: 20111010
  Serious: Yes (Other)
  Sender: FDA-Public Use
  Company Number: GB-ACCORD-008836

PATIENT
  Age: 27 Year
  Sex: Female

DRUGS (7)
  1. CARBAMAZEPINE [Suspect]
     Indication: CONVULSION
  2. ZONISAMIDE [Suspect]
     Indication: CONVULSION
  3. PHENYTOIN [Suspect]
     Indication: CONVULSION
  4. TIAGABINE HCL [Suspect]
     Indication: CONVULSION
  5. TOPIRAMATE [Suspect]
     Indication: CONVULSION
     Dosage: ORAL
     Route: 048
  6. LEVETIRACETAM [Suspect]
     Indication: CONVULSION
  7. LAMOTRIGINE [Suspect]
     Indication: CONVULSION

REACTIONS (2)
  - ENCEPHALOCELE [None]
  - DRUG INEFFECTIVE [None]
